FAERS Safety Report 5117627-4 (Version None)
Quarter: 2006Q3

REPORT INFORMATION
  Report Type: 
  Country: None (occurrence: None)
  Receive Date: 20060928
  Receipt Date: 20060928
  Transmission Date: 20061208
  Serious: Yes (Hospitalization)
  Sender: FDA-Public Use
  Company Number: None

PATIENT
  Age: 75 Year
  Sex: Female
  Weight: 42.7 kg

DRUGS (13)
  1. AMBIEN [Suspect]
     Indication: INSOMNIA
     Dosage: 5 MG PO X 1
     Dates: start: 20060713
  2. PRAVACHOL [Concomitant]
  3. SOTALOL HYDROCHLORIDE [Concomitant]
  4. NORVASC [Concomitant]
  5. ZETIA [Concomitant]
  6. ALLEGRA [Concomitant]
  7. ASPIRIN [Concomitant]
  8. LISINOPRIL [Concomitant]
  9. BENADRYL [Concomitant]
  10. PREDNISONE TAB [Concomitant]
  11. INTEGRILIN [Concomitant]
  12. HEPARIN [Concomitant]
  13. TAGAMET [Concomitant]

REACTIONS (3)
  - AGITATION [None]
  - CONFUSIONAL STATE [None]
  - DISORIENTATION [None]
